FAERS Safety Report 4323755-3 (Version None)
Quarter: 2004Q1

REPORT INFORMATION
  Report Type: 
  Country: None (occurrence: None)
  Receive Date: 20040323
  Receipt Date: 20040316
  Transmission Date: 20041129
  Serious: Yes (Life-Threatening, Hospitalization)
  Sender: FDA-Public Use
  Company Number: 2004199163DE

PATIENT
  Age: 62 Year
  Sex: Female

DRUGS (7)
  1. CELECOXIB / PLACEBO [Suspect]
     Indication: COLORECTAL CANCER METASTATIC
     Dosage: 400 MG, BID, ORAL
     Route: 048
     Dates: start: 20040209, end: 20040213
  2. CAMPTOSAR [Suspect]
     Indication: COLORECTAL CANCER METASTATIC
     Dosage: 500 MG, IV
     Route: 042
     Dates: start: 20040209, end: 20040209
  3. COMPARATOR-CAPECITABINE (CAPECITABINE) TABLET [Suspect]
     Indication: COLORECTAL CANCER METASTATIC
     Dosage: 200 MG, BID, ORAL
     Route: 048
     Dates: start: 20040209, end: 20040213
  4. IMODIUM [Concomitant]
  5. CIPROFLOXACIN [Concomitant]
  6. PSYQUIL (TRIFLUPROMAZINE) [Concomitant]
  7. METOCLOPRAMIDE [Concomitant]

REACTIONS (7)
  - ABDOMINAL PAIN [None]
  - CARDIOTOXICITY [None]
  - DIARRHOEA [None]
  - FEBRILE NEUTROPENIA [None]
  - HYPOVOLAEMIA [None]
  - TACHYCARDIA [None]
  - VOMITING [None]
